FAERS Safety Report 6535844-3 (Version None)
Quarter: 2010Q1

REPORT INFORMATION
  Report Type: 
  Country: None (occurrence: None)
  Receive Date: 20100106
  Receipt Date: 20091231
  Transmission Date: 20100710
  Serious: Yes (Other)
  Sender: FDA-Public Use
  Company Number: 1000011033

PATIENT
  Sex: Male

DRUGS (8)
  1. CELEXA [Suspect]
  2. PRILOSEC [Concomitant]
  3. HYDROCODONE [Concomitant]
  4. ATIVAN [Concomitant]
  5. ZANAFLEX [Concomitant]
  6. PLAVIX [Concomitant]
  7. CRESTOR [Concomitant]
  8. LOVAZA [Concomitant]

REACTIONS (1)
  - LUNG NEOPLASM MALIGNANT [None]
